FAERS Safety Report 20488974 (Version 1)
Quarter: 2022Q1

REPORT INFORMATION
  Report Type: Spontaneous
  Country: FR (occurrence: FR)
  Receive Date: 20220218
  Receipt Date: 20220218
  Transmission Date: 20220423
  Serious: Yes (Hospitalization)
  Sender: FDA-Public Use
  Company Number: None

PATIENT
  Age: 77 Year
  Sex: Male
  Weight: 100 kg

DRUGS (3)
  1. DULOXETINE [Suspect]
     Active Substance: DULOXETINE
     Indication: Product used for unknown indication
     Dosage: DULOXETINE (CHLORHYDRATE DE); UNIT DOSE: 60MG
     Route: 048
     Dates: end: 20211225
  2. ESOMEPRAZOLE [Suspect]
     Active Substance: ESOMEPRAZOLE
     Indication: Product used for unknown indication
     Dosage: 80MG
     Route: 048
     Dates: end: 20211225
  3. METHOTREXATE [Suspect]
     Active Substance: METHOTREXATE
     Indication: Psoriasis
     Dosage: 20MG
     Route: 048
     Dates: start: 201708, end: 20211225

REACTIONS (1)
  - Encephalopathy [Recovering/Resolving]

NARRATIVE: CASE EVENT DATE: 20211201
